FAERS Safety Report 8185372-7 (Version None)
Quarter: 2012Q1

REPORT INFORMATION
  Report Type: 
  Country: None (occurrence: None)
  Receive Date: 20120305
  Receipt Date: 20120229
  Transmission Date: 20120608
  Serious: Yes (Death, Hospitalization)
  Sender: FDA-Public Use
  Company Number: PHHY2012FR017359

PATIENT
  Sex: Female

DRUGS (6)
  1. SINEMET [Suspect]
     Dosage: CARBIDOPA 100MG, LEVODOPA 10 MG, 4 DF DAILY
     Route: 048
     Dates: start: 20090101
  2. TRIVASTAN - SLOW RELEASE [Suspect]
     Dosage: 300 MG, DAILY
     Route: 048
     Dates: start: 20050101, end: 20111013
  3. COMTAN [Suspect]
     Dosage: 200 MG, 4 TABLETES DAILY
     Route: 048
     Dates: start: 20100726
  4. SINEMET [Suspect]
     Dosage: 200 MG DAILY
  5. SINEMET [Suspect]
     Dosage: 200 MG, DAILY
  6. SINEMET [Suspect]
     Dosage: 100 MG CARBIDOPA, 25 MG LEVODOPA, DAILY
     Route: 048
     Dates: start: 20080903

REACTIONS (5)
  - DRUG WITHDRAWAL SYNDROME [None]
  - ON AND OFF PHENOMENON [None]
  - COMPLETED SUICIDE [None]
  - AKINESIA [None]
  - IMPULSIVE BEHAVIOUR [None]
